FAERS Safety Report 16165668 (Version 1)
Quarter: 2019Q2

REPORT INFORMATION
  Report Type: Report from Study
  Country: MX (occurrence: MX)
  Receive Date: 20190405
  Receipt Date: 20190405
  Transmission Date: 20190711
  Serious: Yes (Hospitalization)
  Sender: FDA-Public Use
  Company Number: PHHY2019MX078103

PATIENT
  Sex: Female

DRUGS (5)
  1. PREGABALIN. [Concomitant]
     Active Substance: PREGABALIN
     Indication: PRODUCT USED FOR UNKNOWN INDICATION
     Dosage: 1 DF, Q12H
     Route: 065
  2. ANGIOTROFIN [Concomitant]
     Active Substance: DILTIAZEM HYDROCHLORIDE
     Indication: HYPERTENSION
  3. DIOVAN [Suspect]
     Active Substance: VALSARTAN
     Dosage: 1 DF, QD AT NIGHT
     Route: 048
  4. ANGIOTROFIN [Concomitant]
     Active Substance: DILTIAZEM HYDROCHLORIDE
     Indication: ARRHYTHMIA
     Dosage: 1 DF, QD
     Route: 048
  5. DIOVAN [Suspect]
     Active Substance: VALSARTAN
     Indication: HYPERTENSION
     Dosage: 1 DF, BID (MORNING AND NIGHT)
     Route: 048
     Dates: start: 2017

REACTIONS (6)
  - Product prescribing error [Unknown]
  - Fracture [Unknown]
  - Accident [Unknown]
  - Inappropriate schedule of product administration [Unknown]
  - Blood pressure decreased [Unknown]
  - Asthenia [Unknown]
